FAERS Safety Report 20110066 (Version 5)
Quarter: 2022Q1

REPORT INFORMATION
  Report Type: Spontaneous
  Country: US (occurrence: US)
  Receive Date: 20211124
  Receipt Date: 20220315
  Transmission Date: 20220423
  Serious: Yes (Other)
  Sender: FDA-Public Use
  Company Number: US-PFIZER INC-202101606573

PATIENT
  Age: 65 Year
  Sex: Male
  Weight: 58.957 kg

DRUGS (1)
  1. NICOTROL [Suspect]
     Active Substance: NICOTINE
     Indication: Smoking cessation therapy
     Dosage: 1008 (ONE THOUSAND EIGHT) INHALER, INHALE ONE CARTRIDGE EVERY 3 HOURS AS NEEDED

REACTIONS (3)
  - Lung neoplasm malignant [Unknown]
  - Emphysema [Unknown]
  - Respiratory failure [Unknown]
